FAERS Safety Report 25738541 (Version 1)
Quarter: 2025Q3

REPORT INFORMATION
  Report Type: Spontaneous
  Country: US (occurrence: US)
  Receive Date: 20250829
  Receipt Date: 20250829
  Transmission Date: 20251021
  Serious: Yes (Other)
  Sender: Teyro Labs
  Company Number: US-TEYRO-2025-TY-000651

PATIENT
  Age: 71 Year
  Sex: Female

DRUGS (4)
  1. CAPECITABINE [Suspect]
     Active Substance: CAPECITABINE
     Indication: Squamous cell carcinoma
     Route: 048
  2. CAPECITABINE [Suspect]
     Active Substance: CAPECITABINE
     Indication: Papilloma viral infection
     Route: 048
  3. MITOMYCIN [Concomitant]
     Active Substance: MITOMYCIN
     Route: 065
  4. MITOMYCIN [Concomitant]
     Active Substance: MITOMYCIN

REACTIONS (2)
  - Arteriospasm coronary [Unknown]
  - Off label use [Unknown]
